FAERS Safety Report 20991573 (Version 1)
Quarter: 2022Q2

REPORT INFORMATION
  Report Type: Report from Study
  Country: US (occurrence: None)
  Receive Date: 20220622
  Receipt Date: 20220622
  Transmission Date: 20220721
  Serious: Yes (Hospitalization)
  Sender: FDA-Public Use
  Company Number: 2022A221945

PATIENT
  Sex: Female
  Weight: 119.3 kg

DRUGS (1)
  1. SYMLIN [Suspect]
     Active Substance: PRAMLINTIDE ACETATE
     Indication: Insulin resistant diabetes
     Route: 058

REACTIONS (2)
  - Chest discomfort [Unknown]
  - Dizziness [Unknown]
